FAERS Safety Report 8643044 (Version 2)
Quarter: 2013Q2

REPORT INFORMATION
  Report Type: Spontaneous
  Country: GB (occurrence: GB)
  Receive Date: 20120629
  Receipt Date: 20130627
  Transmission Date: 20140414
  Serious: Yes (Other)
  Sender: FDA-Public Use
  Company Number: GB-PFIZER INC-2012153347

PATIENT
  Age: 64 Year
  Sex: Female

DRUGS (3)
  1. AMLODIPINE BESILATE [Suspect]
     Indication: BLOOD PRESSURE INCREASED
     Dosage: 5 MG, 1X/DAY (TO BE TAKEN AT 7AM)
     Route: 048
     Dates: start: 201203, end: 20120524
  2. BENDROFLUMETHIAZIDE [Concomitant]
     Indication: BLOOD PRESSURE
     Dosage: 1 DF, 1X/DAY (STARTED OVER A YEAR AGO)
     Route: 048
  3. BENDROFLUMETHIAZIDE [Concomitant]
     Indication: HORMONE REPLACEMENT THERAPY

REACTIONS (4)
  - Joint swelling [Not Recovered/Not Resolved]
  - Rash erythematous [Not Recovered/Not Resolved]
  - Erythema [Not Recovered/Not Resolved]
  - Pruritus [Not Recovered/Not Resolved]
